FAERS Safety Report 11614067 (Version 1)
Quarter: 2015Q4

REPORT INFORMATION
  Report Type: Other
  Country: ES (occurrence: ES)
  Receive Date: 20151008
  Receipt Date: 20151008
  Transmission Date: 20160304
  Serious: Yes (Hospitalization)
  Sender: FDA-Public Use
  Company Number: ES-MEDAC PHARMA, INC.-1042756

PATIENT
  Age: 45 Year
  Sex: Male

DRUGS (1)
  1. MTX [Suspect]
     Active Substance: METHOTREXATE SODIUM
     Indication: PSORIASIS
     Route: 058

REACTIONS (3)
  - Skin ulcer [Recovered/Resolved]
  - Bicytopenia [Recovered/Resolved]
  - Inappropriate schedule of drug administration [Recovered/Resolved]
